FAERS Safety Report 7009940-0 (Version None)
Quarter: 2010Q3

REPORT INFORMATION
  Report Type: 
  Country: None (occurrence: None)
  Receive Date: 20100921
  Receipt Date: 20100903
  Transmission Date: 20110219
  Serious: Yes (Other)
  Sender: FDA-Public Use
  Company Number: US-ACCORD-006077

PATIENT
  Age: 59 Year
  Sex: Female

DRUGS (3)
  1. ANASTROZOLE [Suspect]
     Indication: BREAST CANCER
     Dosage: 1.00 MG-1.00 PER 1.0 DAYS ORAL
     Route: 048
     Dates: start: 20100701, end: 20100801
  2. PRAVASTATIN [Concomitant]
  3. METOPROLOL [Concomitant]

REACTIONS (6)
  - ANXIETY [None]
  - FLUSHING [None]
  - HEART RATE INCREASED [None]
  - PRODUCT SUBSTITUTION ISSUE [None]
  - PRURITUS [None]
  - PSYCHOMOTOR HYPERACTIVITY [None]
